FAERS Safety Report 5005249-5 (Version None)
Quarter: 2006Q2

REPORT INFORMATION
  Report Type: 
  Country: None (occurrence: None)
  Receive Date: 20060515
  Receipt Date: 20060504
  Transmission Date: 20061013
  Serious: Yes (Other)
  Sender: FDA-Public Use
  Company Number: 200611895BCC

PATIENT
  Sex: Female
  Weight: 79.3795 kg

DRUGS (1)
  1. ALEVE [Suspect]
     Indication: ARTHRITIS
     Dosage: 440 MG, QD, ORAL
     Route: 048

REACTIONS (2)
  - CHEST PAIN [None]
  - CONDITION AGGRAVATED [None]
